FAERS Safety Report 8050814-4 (Version None)
Quarter: 2012Q1

REPORT INFORMATION
  Report Type: 
  Country: None (occurrence: None)
  Receive Date: 20120117
  Receipt Date: 20120111
  Transmission Date: 20120608
  Serious: Yes (Other)
  Sender: FDA-Public Use
  Company Number: DK-PFIZER INC-2012008948

PATIENT
  Age: 30 Year
  Sex: Female

DRUGS (2)
  1. DOSTINEX [Suspect]
     Indication: BREAST FEEDING
     Dosage: 0.5 MG,  2 TABLETS IN TWO DAYS
  2. LAMOTRIGINE [Concomitant]
     Indication: EPILEPSY

REACTIONS (2)
  - DRUG INEFFECTIVE [None]
  - BRAIN NEOPLASM [None]
